FAERS Safety Report 15417932 (Version 1)
Quarter: 2018Q3

REPORT INFORMATION
  Report Type: Report from Study
  Country: US (occurrence: US)
  Receive Date: 20180924
  Receipt Date: 20180924
  Transmission Date: 20181010
  Serious: No
  Sender: FDA-Public Use
  Company Number: US-ROCHE-2186878

PATIENT
  Age: 37 Year
  Sex: Female

DRUGS (1)
  1. OCREVUS [Suspect]
     Active Substance: OCRELIZUMAB
     Indication: RELAPSING MULTIPLE SCLEROSIS
     Dosage: SECOND INFUSION WAS GIVEN ON 26/MAR/2018
     Route: 065
     Dates: start: 20180312

REACTIONS (6)
  - Rash [Unknown]
  - Urinary tract infection [Unknown]
  - Pyrexia [Unknown]
  - Tremor [Unknown]
  - Chills [Unknown]
  - Oral herpes [Unknown]

NARRATIVE: CASE EVENT DATE: 20180312
